FAERS Safety Report 6830592-4 (Version None)
Quarter: 2010Q3

REPORT INFORMATION
  Report Type: 
  Country: None (occurrence: None)
  Receive Date: 20100712
  Receipt Date: 20100705
  Transmission Date: 20110219
  Serious: Yes (Life-Threatening, Hospitalization, Disabling)
  Sender: FDA-Public Use
  Company Number: IL-CELGENEUS-082-C5013-10060208

PATIENT
  Sex: Male
  Weight: 75 kg

DRUGS (17)
  1. CC-5013 [Suspect]
     Indication: MANTLE CELL LYMPHOMA
     Route: 048
     Dates: start: 20100505, end: 20100525
  2. CC-5013 [Suspect]
     Route: 048
     Dates: end: 20100602
  3. CC-5013 [Suspect]
     Route: 048
     Dates: start: 20100616
  4. DISOTHIAZIDE [Concomitant]
     Indication: HYPERTENSION
     Route: 048
     Dates: start: 20010101, end: 20100511
  5. ENALADEX [Concomitant]
     Indication: HYPERTENSION
     Route: 048
     Dates: start: 20010101, end: 20100511
  6. NORVASC [Concomitant]
     Indication: HYPERTENSION
     Route: 048
     Dates: start: 20010101
  7. MICROPIRIN [Concomitant]
     Indication: HYPERTENSION
     Route: 048
     Dates: start: 20010101, end: 20100609
  8. MAXITROL OINTMENT [Concomitant]
     Route: 047
     Dates: start: 20100101
  9. SIMVACOR [Concomitant]
     Route: 048
     Dates: start: 20100101
  10. TRIDERM [Concomitant]
     Route: 061
     Dates: start: 20100515, end: 20100524
  11. RED BLOOD CELLS [Concomitant]
     Dosage: 1 UNIT
     Route: 051
     Dates: start: 20100520, end: 20100520
  12. TRITACE [Concomitant]
     Indication: HYPERTENSION
     Route: 048
     Dates: start: 20100501
  13. VITAMIN D [Concomitant]
     Indication: VITAMIN D DEFICIENCY
     Route: 048
     Dates: start: 20100101
  14. BENZALKONIUM CHLORIDE [Concomitant]
     Dates: start: 20100501
  15. MOXIPEN [Concomitant]
     Indication: URINARY TRACT INFECTION
     Route: 048
     Dates: start: 20100515, end: 20100522
  16. FLAGYL [Concomitant]
     Indication: URINARY TRACT INFECTION
     Route: 051
     Dates: start: 20100511, end: 20100514
  17. CEFUROXIME [Concomitant]
     Indication: URINARY TRACT INFECTION
     Route: 051
     Dates: start: 20100511, end: 20100514

REACTIONS (1)
  - CEREBROVASCULAR ACCIDENT [None]
